FAERS Safety Report 6096941-2 (Version None)
Quarter: 2009Q1

REPORT INFORMATION
  Report Type: 
  Country: None (occurrence: None)
  Receive Date: 20090227
  Receipt Date: 20090221
  Transmission Date: 20090719
  Serious: Yes (Hospitalization)
  Sender: FDA-Public Use
  Company Number: DE-JNJFOC-20090205825

PATIENT
  Age: 3 Year
  Sex: Female

DRUGS (2)
  1. DOLORMIN FUR KINDER 2% [Suspect]
     Route: 048
  2. DOLORMIN FUR KINDER 2% [Suspect]
     Indication: DRUG USE FOR UNKNOWN INDICATION
     Route: 048

REACTIONS (1)
  - SWOLLEN TONGUE [None]
